FAERS Safety Report 9638461 (Version 2)
Quarter: 2013Q4

REPORT INFORMATION
  Report Type: Report from Study
  Country: NL (occurrence: NL)
  Receive Date: 20131022
  Receipt Date: 20131029
  Transmission Date: 20140711
  Serious: Yes (Hospitalization)
  Sender: FDA-Public Use
  Company Number: NL-JNJFOC-20131011718

PATIENT
  Age: 55 Year
  Sex: Male

DRUGS (7)
  1. SIMPONI [Suspect]
     Indication: ANKYLOSING SPONDYLITIS
     Route: 058
  2. SIMPONI [Suspect]
     Indication: ANKYLOSING SPONDYLITIS
     Route: 058
     Dates: start: 20130917
  3. METHOTREXATE [Concomitant]
     Route: 065
  4. FOLIC ACID [Concomitant]
     Route: 065
  5. PANTOPRAZOL [Concomitant]
     Route: 065
  6. CICLESONIDE [Concomitant]
     Dosage: DOSAGE: 80 MICROG/DOSIS
     Route: 055
  7. IBUPROFEN [Concomitant]
     Route: 065

REACTIONS (2)
  - Cellulitis [Recovering/Resolving]
  - Bursitis [Recovering/Resolving]
